FAERS Safety Report 5829149-3 (Version None)
Quarter: 2008Q2

REPORT INFORMATION
  Report Type: 
  Country: None (occurrence: None)
  Receive Date: 20080601
  Receipt Date: 20080305
  Transmission Date: 20081010
  Serious: No
  Sender: FDA-Public Use
  Company Number: US200802004208

PATIENT
  Age: 63 Year
  Sex: Male

DRUGS (4)
  1. BYETTA [Suspect]
     Indication: TYPE 2 DIABETES MELLITUS
     Dosage: 5 UG, 5 UG, DAILY (1/D), 10 UG
     Dates: start: 20060427, end: 20080221
  2. BYETTA [Suspect]
     Indication: TYPE 2 DIABETES MELLITUS
     Dosage: 5 UG, 5 UG, DAILY (1/D), 10 UG
     Dates: start: 20070101
  3. GLIMEPIRIDE [Concomitant]
  4. AVANDIA [Concomitant]

REACTIONS (8)
  - ANASTOMOTIC ULCER [None]
  - BLOOD GLUCOSE DECREASED [None]
  - BLOOD GLUCOSE INCREASED [None]
  - INJECTION SITE NODULE [None]
  - INJECTION SITE PRURITUS [None]
  - LIP SWELLING [None]
  - NAUSEA [None]
  - ORAL DISCOMFORT [None]
